FAERS Safety Report 9799889 (Version 1)
Quarter: 2014Q1

REPORT INFORMATION
  Report Type: Spontaneous
  Country: SG (occurrence: SG)
  Receive Date: 20140106
  Receipt Date: 20140106
  Transmission Date: 20141002
  Serious: Yes (Other)
  Sender: FDA-Public Use
  Company Number: SG-BAXTER-2013BAX053461

PATIENT
  Sex: 0

DRUGS (1)
  1. DIANEAL LOW CALCIUM (2.5 MEQ/L) PERITONEAL DIALYSIS SOLUTION WITH 2.5 [Suspect]
     Indication: PERITONEAL DIALYSIS
     Route: 033

REACTIONS (6)
  - Upper extremity mass [Unknown]
  - Pain in extremity [Unknown]
  - Bone pain [Unknown]
  - Neck pain [Unknown]
  - Groin pain [Unknown]
  - Vomiting [Unknown]
